FAERS Safety Report 17368563 (Version 1)
Quarter: 2020Q1

REPORT INFORMATION
  Report Type: Spontaneous
  Country: US (occurrence: US)
  Receive Date: 20200120
  Receipt Date: 20200120
  Transmission Date: 20200409
  Serious: No
  Sender: FDA-Public Use
  Company Number: None

PATIENT
  Age: 66 Year
  Sex: Female

DRUGS (2)
  1. IBRANCE [Suspect]
     Active Substance: PALBOCICLIB
     Indication: BREAST CANCER
     Dosage: DAILY FOR 21 DAYS;  OTHER?
     Route: 048
     Dates: start: 201910, end: 202001
  2. AROMASIN [Concomitant]
     Active Substance: EXEMESTANE

REACTIONS (2)
  - White blood cell count decreased [None]
  - Drug ineffective [None]

NARRATIVE: CASE EVENT DATE: 20200117
